FAERS Safety Report 4595839-6 (Version None)
Quarter: 2005Q1

REPORT INFORMATION
  Report Type: 
  Country: None (occurrence: None)
  Receive Date: 20050224
  Receipt Date: 20050224
  Transmission Date: 20050727
  Serious: Yes (Hospitalization)
  Sender: FDA-Public Use
  Company Number: None

PATIENT
  Sex: Male

DRUGS (11)
  1. ALLOPURINOL [Suspect]
     Indication: GOUT
     Dosage: 100 MG TID ORAL
     Route: 048
  2. INDOMETHACIN [Suspect]
     Indication: GOUT
     Dosage: 50 MG BID PRN ORAL
     Route: 048
  3. ASPIRIN [Concomitant]
  4. BUPROPION HCL [Concomitant]
  5. CLONAZEPAM [Concomitant]
  6. MORPHINE [Concomitant]
  7. ENSURE [Concomitant]
  8. OLANZAPINE [Concomitant]
  9. SERTRALINE HCL [Concomitant]
  10. SILDENAFIL [Concomitant]
  11. TRAZODONE HCL [Concomitant]

REACTIONS (2)
  - HEPATITIS [None]
  - TRANSAMINASES INCREASED [None]
